FAERS Safety Report 4810542-2 (Version None)
Quarter: 2005Q4

REPORT INFORMATION
  Report Type: 
  Country: None (occurrence: None)
  Receive Date: 20051025
  Receipt Date: 20051025
  Transmission Date: 20060501
  Serious: Yes (Other)
  Sender: FDA-Public Use
  Company Number: None

PATIENT
  Age: 50 Year
  Sex: Female

DRUGS (2)
  1. AMITRIPTYLINE TABS M36; 50MG [Suspect]
     Indication: MYALGIA
     Dosage: THREE TABS AT BEDTIME
     Dates: start: 20050601
  2. AMITRIPTYLINE TABS M36; 50MG [Suspect]
     Indication: MYOSITIS
     Dosage: THREE TABS AT BEDTIME
     Dates: start: 20050601

REACTIONS (2)
  - ANGINA PECTORIS [None]
  - PHARMACEUTICAL PRODUCT COMPLAINT [None]
